FAERS Safety Report 9288124 (Version 1)
Quarter: 2013Q2

REPORT INFORMATION
  Report Type: Spontaneous
  Country: BR (occurrence: BR)
  Receive Date: 20130514
  Receipt Date: 20130514
  Transmission Date: 20140414
  Serious: Yes (Other)
  Sender: FDA-Public Use
  Company Number: BR-009507513-1305BRA006919

PATIENT
  Age: 64 Year
  Sex: Male
  Weight: 74 kg

DRUGS (4)
  1. SIMVASTATIN [Suspect]
     Indication: BLOOD CHOLESTEROL INCREASED
     Dosage: UNK, QOD
     Route: 048
     Dates: start: 1999, end: 201303
  2. BEROTEC [Concomitant]
     Indication: ASTHMA
     Dosage: UNK
     Dates: start: 2009
  3. ATROVENT [Concomitant]
     Indication: ASTHMA
     Dosage: UNK
     Dates: start: 2009
  4. VANNAIR [Concomitant]
     Indication: ASTHMA
     Dosage: 6/200 MICROGRAM, BID
     Dates: start: 2009

REACTIONS (4)
  - Myocardial infarction [Recovered/Resolved]
  - Angina pectoris [Recovered/Resolved]
  - Stent placement [Unknown]
  - Off label use [Unknown]
